FAERS Safety Report 14779398 (Version 3)
Quarter: 2018Q2

REPORT INFORMATION
  Report Type: Not Available
  Country: US (occurrence: US)
  Receive Date: 20180419
  Receipt Date: 20180618
  Transmission Date: 20180711
  Serious: No
  Sender: FDA-Public Use
  Company Number: US-NEUROCRINE BIOSCIENCES INC.-2018NBI00911

PATIENT
  Sex: Female
  Weight: 50.85 kg

DRUGS (24)
  1. INGREZZA [Suspect]
     Active Substance: VALBENAZINE
     Indication: DYSKINESIA
     Route: 048
     Dates: start: 201802, end: 201802
  2. INGREZZA [Suspect]
     Active Substance: VALBENAZINE
     Route: 048
     Dates: start: 2018
  3. VITAMIN D3 [Concomitant]
     Active Substance: CHOLECALCIFEROL
     Dosage: 1000 UNITS CAPSULE
     Route: 048
     Dates: start: 20180215
  4. FLONASE [Concomitant]
     Active Substance: FLUTICASONE PROPIONATE
     Dosage: 50 MCG/ACT  2 SPRAYS INTO EACH NOSTRIL
     Route: 045
     Dates: start: 20180328, end: 20180424
  5. LIDOCAINE W/MENTHOL [Concomitant]
     Indication: PAIN
     Dosage: 4-1 PERCENT THIN FILM OVER 60 G TO THE SHOULDER TWICE DAILY AS NEEDED
     Dates: start: 20171220
  6. COLACE [Concomitant]
     Active Substance: DOCUSATE SODIUM
     Route: 048
  7. SENOKOT [Concomitant]
     Active Substance: SENNOSIDES
     Dosage: TOTAL DOSE 17.2 MG
     Route: 048
     Dates: start: 20171017, end: 20180501
  8. INGREZZA [Suspect]
     Active Substance: VALBENAZINE
     Indication: TARDIVE DYSKINESIA
     Route: 048
     Dates: start: 201802, end: 2018
  9. FOSAMAX [Concomitant]
     Active Substance: ALENDRONATE SODIUM
     Dosage: 1 TABLET EVERY MORNING BEFORE BREAKFAST
     Route: 048
     Dates: start: 20180227
  10. WELLBUTRIN XL [Concomitant]
     Active Substance: BUPROPION HYDROCHLORIDE
     Dosage: 300 MG 1 24 HR TAB PO IN MORNING
     Route: 048
     Dates: start: 20180323
  11. LEXAPRO [Concomitant]
     Active Substance: ESCITALOPRAM OXALATE
     Dosage: 20 MG 1 TABLET NIGHTLY
     Route: 048
     Dates: start: 20180323
  12. FERROUS SULFATE. [Concomitant]
     Active Substance: FERROUS SULFATE
     Dosage: 325 (65 FE) MG
     Route: 048
     Dates: start: 20180131
  13. FLONASE [Concomitant]
     Active Substance: FLUTICASONE PROPIONATE
     Dosage: 50 MCG/ACT  2 SPRAYS INTO EACH NOSTRIL
     Route: 045
     Dates: start: 20180323
  14. SYNTHROID [Concomitant]
     Active Substance: LEVOTHYROXINE SODIUM
     Dosage: 125 MICROGRAM 1 TABLET NIGHTLY
     Route: 048
     Dates: start: 20180302
  15. DAILY-VLTE [Concomitant]
     Route: 048
     Dates: start: 20180403
  16. GAS-X [Concomitant]
     Active Substance: DIMETHICONE
     Indication: FLATULENCE
     Dosage: CHEW 1 TABLET EVERY 6 (SIX) HOURS AS NEEDED
     Route: 048
     Dates: start: 20180408
  17. ASPIRIN (E.C.) [Concomitant]
     Active Substance: ASPIRIN
     Route: 048
     Dates: start: 20180227
  18. ZESTRIL [Concomitant]
     Active Substance: LISINOPRIL
     Route: 048
     Dates: start: 20171106
  19. MAPAP [Concomitant]
     Active Substance: ACETAMINOPHEN
     Dosage: TOTAL 650 MILLIGRAM
     Route: 048
     Dates: start: 20180102
  20. MELATONIN [Concomitant]
     Active Substance: MELATONIN
     Dosage: 3 MG NIGHTLY
     Route: 048
     Dates: start: 20171027, end: 20180430
  21. GLYCOLAX [Concomitant]
     Active Substance: POLYETHYLENE GLYCOL 3350
     Dosage: 17 G BY DAILY AS NEEDED
     Route: 048
     Dates: start: 20171121
  22. OSCAL [Concomitant]
     Active Substance: CALCIUM CARBONATE
     Dosage: 500-200 MG UNIT PER TABLET
     Route: 048
     Dates: start: 20180404
  23. ARICEPT [Concomitant]
     Active Substance: DONEPEZIL HYDROCHLORIDE
     Dosage: 10 MG 1 TABLET NIGHTLY
     Route: 048
     Dates: start: 20180213
  24. PRINIVIL [Concomitant]
     Active Substance: LISINOPRIL
     Route: 048
     Dates: start: 20171106

REACTIONS (4)
  - Abnormal dreams [Recovering/Resolving]
  - Nightmare [Recovering/Resolving]
  - Insomnia [Recovering/Resolving]
  - Fatigue [Recovering/Resolving]

NARRATIVE: CASE EVENT DATE: 2018
